FAERS Safety Report 16371569 (Version 1)
Quarter: 2019Q2

REPORT INFORMATION
  Report Type: Spontaneous
  Country: US (occurrence: US)
  Receive Date: 20190530
  Receipt Date: 20190530
  Transmission Date: 20190711
  Serious: No
  Sender: FDA-Public Use
  Company Number: US-PFIZER INC-2019225881

PATIENT
  Sex: Male

DRUGS (2)
  1. ZARONTIN [Suspect]
     Active Substance: ETHOSUXIMIDE
     Dosage: UNK
  2. DILANTIN [Suspect]
     Active Substance: PHENYTOIN
     Dosage: 50 MG, UNK

REACTIONS (1)
  - Confusional state [Unknown]
